FAERS Safety Report 15838099 (Version 1)
Quarter: 2018Q4

REPORT INFORMATION
  Report Type: Spontaneous
  Country: US (occurrence: US)
  Receive Date: 20181222
  Receipt Date: 20181222
  Transmission Date: 20190205
  Serious: Yes (Hospitalization)
  Sender: FDA-Public Use
  Company Number: None

PATIENT
  Age: 60 Year
  Sex: Female
  Weight: 74 kg

DRUGS (1)
  1. PAZOPANIB (GW786034) [Suspect]
     Active Substance: PAZOPANIB
     Dates: end: 20181129

REACTIONS (7)
  - Spinal disorder [None]
  - Vaginal haemorrhage [None]
  - Muscular weakness [None]
  - Balance disorder [None]
  - Metastatic neoplasm [None]
  - Nuclear magnetic resonance imaging abnormal [None]
  - Mass [None]

NARRATIVE: CASE EVENT DATE: 20181212
